FAERS Safety Report 22540052 (Version 1)
Quarter: 2023Q2

REPORT INFORMATION
  Report Type: Spontaneous
  Country: US (occurrence: None)
  Receive Date: 20230608
  Receipt Date: 20230608
  Transmission Date: 20230722
  Serious: Yes (Death)
  Sender: FDA-Public Use
  Company Number: None

PATIENT
  Age: 59 Year
  Sex: Female

DRUGS (1)
  1. APIXABAN [Suspect]
     Active Substance: APIXABAN

REACTIONS (6)
  - Ventricular tachycardia [None]
  - Encephalopathy [None]
  - Cerebral haemorrhage [None]
  - Intraventricular haemorrhage [None]
  - End stage renal disease [None]
  - Haemodialysis [None]

NARRATIVE: CASE EVENT DATE: 20230221
